FAERS Safety Report 24852379 (Version 3)
Quarter: 2025Q3

REPORT INFORMATION
  Report Type: Spontaneous
  Country: US (occurrence: US)
  Receive Date: 20250116
  Receipt Date: 20250827
  Transmission Date: 20251020
  Serious: No
  Sender: SANOFI AVENTIS
  Company Number: US-SA-2025SA012582

PATIENT
  Age: 29 Year
  Sex: Female

DRUGS (3)
  1. DUPIXENT [Suspect]
     Active Substance: DUPILUMAB
     Indication: Dermatitis atopic
     Dosage: 300 MG, QOW
     Route: 058
     Dates: start: 2023
  2. DUPIXENT [Suspect]
     Active Substance: DUPILUMAB
     Dosage: 300 MG, QOW
     Route: 058
     Dates: start: 202411
  3. DUPIXENT [Suspect]
     Active Substance: DUPILUMAB
     Dosage: 300 MG, QOW
     Route: 058

REACTIONS (10)
  - Skin irritation [Unknown]
  - Dermatitis [Unknown]
  - Erythema [Unknown]
  - Rebound effect [Unknown]
  - Intentional dose omission [Unknown]
  - Rebound atopic dermatitis [Unknown]
  - Eczema [Unknown]
  - Incorrect dose administered [Unknown]
  - Accidental exposure to product [Unknown]
  - Exposure via skin contact [Unknown]
